FAERS Safety Report 4769077-8 (Version None)
Quarter: 2005Q3

REPORT INFORMATION
  Report Type: 
  Country: None (occurrence: None)
  Receive Date: 20050906
  Receipt Date: 20050503
  Transmission Date: 20060218
  Serious: No
  Sender: FDA-Public Use
  Company Number: 2005-BP-06280BP

PATIENT
  Age: 74 Year
  Sex: Male

DRUGS (6)
  1. SPIRIVA [Suspect]
     Indication: ASTHMA
     Dosage: (18 MCG), IH
     Route: 055
  2. SPIRIVA [Suspect]
  3. UNIPHYL [Concomitant]
  4. SEREVENT [Concomitant]
  5. FLOVENT [Concomitant]
  6. VASOTEC [Concomitant]

REACTIONS (1)
  - AGEUSIA [None]
